FAERS Safety Report 7623790-3 (Version None)
Quarter: 2011Q3

REPORT INFORMATION
  Report Type: 
  Country: None (occurrence: None)
  Receive Date: 20110719
  Receipt Date: 20110719
  Transmission Date: 20111222
  Serious: Yes (Hospitalization, Other)
  Sender: FDA-Public Use
  Company Number: None

PATIENT
  Sex: Male
  Weight: 90.2 kg

DRUGS (1)
  1. GILENYA [Suspect]
     Indication: MULTIPLE SCLEROSIS
     Dosage: 0.5MG (1 CAPSULE) DAILY PO
     Route: 048
     Dates: start: 20110627, end: 20110630

REACTIONS (3)
  - ACUTE MYOCARDIAL INFARCTION [None]
  - VENTRICULAR DYSFUNCTION [None]
  - CORONARY ARTERY STENOSIS [None]
